FAERS Safety Report 9203113 (Version 1)
Quarter: 2013Q1

REPORT INFORMATION
  Report Type: Spontaneous
  Country: US (occurrence: None)
  Receive Date: 20120709
  Receipt Date: 20120709
  Transmission Date: 20140127
  Serious: Yes (Disabling, Other)
  Sender: FDA-Public Use
  Company Number: PPHY2010US57554

PATIENT
  Age: 53 Year
  Sex: Female
  Weight: 89.5 kg

DRUGS (5)
  1. GLEEVEC (IMATINIB) UNKNOWN [Suspect]
     Indication: CHRONIC MYELOID LEUKAEMIA
     Route: 048
     Dates: start: 20081024, end: 20090305
  2. TASIGNA (NILOTINIB HYDROCHLORIDE) [Concomitant]
  3. METFORMIN (METFORMIN) [Concomitant]
  4. PREDNISONE (PREDNISONE) [Concomitant]
  5. DURAGESIC (FENTANYL) (PATCH) [Concomitant]

REACTIONS (11)
  - Fungal infection [None]
  - Hyperglycaemia [None]
  - Arthralgia [None]
  - Myalgia [None]
  - Rhinorrhoea [None]
  - Nasal congestion [None]
  - Weight increased [None]
  - Bone pain [None]
  - Eye swelling [None]
  - Feeling abnormal [None]
  - Burning sensation [None]
